FAERS Safety Report 10283622 (Version 2)
Quarter: 2014Q3

REPORT INFORMATION
  Report Type: Spontaneous
  Country: US (occurrence: None)
  Receive Date: 20140702
  Receipt Date: 20140711
  Transmission Date: 20150326
  Serious: Yes (Other)
  Sender: FDA-Public Use
  Company Number: 2014-US-007363

PATIENT
  Age: 55 Year
  Sex: Male

DRUGS (1)
  1. XYREM [Suspect]
     Active Substance: SODIUM OXYBATE
     Indication: NARCOLEPSY
     Route: 048
     Dates: start: 201007, end: 2010

REACTIONS (7)
  - Pain in extremity [None]
  - Fall [None]
  - Arthralgia [None]
  - Back pain [None]
  - Sleep attacks [None]
  - Sleep apnoea syndrome [None]
  - Foot fracture [None]
